FAERS Safety Report 13256467 (Version 1)
Quarter: 2017Q1

REPORT INFORMATION
  Report Type: Spontaneous
  Country: US (occurrence: US)
  Receive Date: 20170221
  Receipt Date: 20170221
  Transmission Date: 20170428
  Serious: Yes (Hospitalization)
  Sender: FDA-Public Use
  Company Number: None

PATIENT
  Age: 26 Year
  Sex: Male

DRUGS (1)
  1. DILAUDID [Suspect]
     Active Substance: HYDROMORPHONE HYDROCHLORIDE

REACTIONS (5)
  - Unresponsive to stimuli [None]
  - Cardio-respiratory arrest [None]
  - Vomiting [None]
  - Respiratory depression [None]
  - Nausea [None]

NARRATIVE: CASE EVENT DATE: 20161115
